FAERS Safety Report 8423978-8 (Version None)
Quarter: 2012Q2

REPORT INFORMATION
  Report Type: 
  Country: None (occurrence: None)
  Receive Date: 20120608
  Receipt Date: 20120604
  Transmission Date: 20120825
  Serious: Yes (Hospitalization)
  Sender: FDA-Public Use
  Company Number: US-AMGEN-USASP2011037130

PATIENT
  Age: 49 Year
  Sex: Female
  Weight: 77.551 kg

DRUGS (17)
  1. TRILIPIX [Concomitant]
     Dosage: 135 MG, QD
     Route: 048
  2. KLONOPIN [Concomitant]
     Dosage: 1 MG, QD
     Route: 048
  3. FOLIC ACID [Concomitant]
     Dosage: 1.2 MG, QD
     Route: 048
  4. TREXALL [Concomitant]
     Dosage: 15 MG, QWK
     Route: 048
  5. AMBIEN CR [Concomitant]
     Dosage: 12.5 MG, QHS
     Route: 048
  6. ENBREL [Suspect]
     Indication: RHEUMATOID ARTHRITIS
     Dosage: 50 MG, QWK
     Route: 058
     Dates: start: 20100219
  7. LITHOBID [Concomitant]
     Dosage: 300 MG, QD
  8. GEODON [Concomitant]
     Dosage: 120 MG, QD
  9. PROPRANOLOL [Concomitant]
     Dosage: 60 MG, QD
     Route: 048
  10. CYTOMEL [Concomitant]
     Dosage: 5 MUG, QD
  11. LEVOTHYROXINE SODIUM [Concomitant]
     Dosage: 25 MUG, QD
  12. REMERON [Concomitant]
     Dosage: 45 MG, QD
     Route: 048
  13. MAGNESIUM [Concomitant]
     Dosage: 1000 MG, QD
     Route: 048
  14. VITAMIN D [Concomitant]
     Dosage: 50000 IU, Q2WK
  15. CITRACAL [Concomitant]
     Dosage: UNK UNK, BID
     Route: 048
  16. TOPAMAX [Concomitant]
     Dosage: 300 MG, QD
     Route: 048
  17. ASPIRIN [Concomitant]
     Dosage: 325 MG, QD
     Route: 048

REACTIONS (1)
  - RENAL FAILURE [None]
